FAERS Safety Report 6488460-6 (Version None)
Quarter: 2009Q4

REPORT INFORMATION
  Report Type: 
  Country: None (occurrence: None)
  Receive Date: 20091210
  Receipt Date: 20091130
  Transmission Date: 20100525
  Serious: Yes (Death)
  Sender: FDA-Public Use
  Company Number: JP-MILLENNIUM PHARMACEUTICALS, INC.-2009-04596

PATIENT

DRUGS (5)
  1. VELCADE [Suspect]
     Indication: MULTIPLE MYELOMA
     Dosage: 2.0 MG, CYCLIC
     Route: 042
     Dates: start: 20090709, end: 20091015
  2. DEXAMETHASONE TAB [Concomitant]
     Indication: MULTIPLE MYELOMA
     Dosage: 20 MG, QD
     Route: 048
     Dates: start: 20091008, end: 20091016
  3. AMLODIN [Concomitant]
     Dosage: 5 MG, QD
     Route: 048
  4. ZYLORIC                            /00003301/ [Concomitant]
     Dosage: 200 MG, QD
     Route: 048
  5. OXYCONTIN [Concomitant]
     Dosage: 5 MG, QD
     Route: 048

REACTIONS (3)
  - MULTI-ORGAN FAILURE [None]
  - PNEUMONIA [None]
  - RENAL FAILURE [None]
